FAERS Safety Report 11592201 (Version 1)
Quarter: 2015Q4

REPORT INFORMATION
  Report Type: Other
  Country: GB (occurrence: GB)
  Receive Date: 20151005
  Receipt Date: 20151005
  Transmission Date: 20160304
  Serious: Yes (Other)
  Sender: FDA-Public Use
  Company Number: GB-GLENMARK PHARMACEUTICALS INC, USA.-2015GMK012963

PATIENT

DRUGS (1)
  1. TOPIRAMATE. [Suspect]
     Active Substance: TOPIRAMATE
     Indication: MIGRAINE PROPHYLAXIS
     Dosage: UNK
     Route: 048
     Dates: start: 20140626, end: 20140629

REACTIONS (8)
  - Angle closure glaucoma [Recovered/Resolved]
  - Vision blurred [Recovered/Resolved]
  - Flat anterior chamber of eye [Recovered/Resolved]
  - Intraocular pressure increased [Recovered/Resolved]
  - Ciliary body disorder [Recovered/Resolved]
  - Chorioretinal disorder [Recovered/Resolved]
  - Headache [Recovered/Resolved]
  - Blindness [Recovered/Resolved]

NARRATIVE: CASE EVENT DATE: 20140626
